FAERS Safety Report 16172926 (Version 1)
Quarter: 2019Q2

REPORT INFORMATION
  Report Type: Spontaneous
  Country: US (occurrence: US)
  Receive Date: 20190305
  Receipt Date: 20190305
  Transmission Date: 20190711
  Serious: Yes (Hospitalization)
  Sender: FDA-Public Use
  Company Number: None

PATIENT
  Age: 45 Year
  Sex: Male

DRUGS (4)
  1. SALICYLIC ACID. [Concomitant]
     Active Substance: SALICYLIC ACID
  2. FLUOCINONIDE. [Concomitant]
     Active Substance: FLUOCINONIDE
  3. LOCOID METHOTREXATE [Concomitant]
  4. HUMIRA [Suspect]
     Active Substance: ADALIMUMAB
     Indication: PSORIASIS
     Route: 058
     Dates: start: 201802

REACTIONS (2)
  - Therapy cessation [None]
  - Hospitalisation [None]
